FAERS Safety Report 16718069 (Version 2)
Quarter: 2019Q4

REPORT INFORMATION
  Report Type: Report from Study
  Country: DE (occurrence: DE)
  Receive Date: 20190819
  Receipt Date: 20191119
  Transmission Date: 20200122
  Serious: Yes (Hospitalization)
  Sender: FDA-Public Use
  Company Number: DE-ELI_LILLY_AND_COMPANY-DE201908005405

PATIENT
  Age: 84 Year
  Sex: Female

DRUGS (1)
  1. TERIPARATIDE [Suspect]
     Active Substance: TERIPARATIDE
     Indication: OSTEOPOROSIS
     Dosage: UNK, DAILY
     Route: 058
     Dates: start: 20181119, end: 201908

REACTIONS (8)
  - Blood pressure decreased [Unknown]
  - Vomiting [Unknown]
  - General physical health deterioration [Unknown]
  - Cardiovascular disorder [Unknown]
  - Asthenia [Unknown]
  - Atrial fibrillation [Unknown]
  - Weight decreased [Unknown]
  - Fatigue [Unknown]
